FAERS Safety Report 17449316 (Version 1)
Quarter: 2020Q1

REPORT INFORMATION
  Report Type: Spontaneous
  Country: IT (occurrence: IT)
  Receive Date: 20200224
  Receipt Date: 20200224
  Transmission Date: 20200409
  Serious: Yes (Hospitalization)
  Sender: FDA-Public Use
  Company Number: IT-TEVA-2020-IT-1190092

PATIENT
  Age: 81 Year
  Sex: Male

DRUGS (1)
  1. OLMESARTAN W/HYDROCHLOROTHIAZIDE [Suspect]
     Active Substance: HYDROCHLOROTHIAZIDE\OLMESARTAN MEDOXOMIL
     Indication: HYPERTENSION
     Dosage: COMBINATION OF OLMESARTAN-MEDOXOMIL/HYDROCHLOROTHIAZIDE 20/12MG
     Route: 065

REACTIONS (13)
  - Vitamin B12 decreased [Unknown]
  - Hypokalaemia [Unknown]
  - C-reactive protein increased [Unknown]
  - Body mass index increased [Unknown]
  - Hypoalbuminaemia [Unknown]
  - Anaemia [Unknown]
  - Blood folate decreased [Unknown]
  - Blood iron decreased [Unknown]
  - Fluid retention [Recovered/Resolved]
  - Electrolyte imbalance [Recovered/Resolved]
  - Gastrointestinal disorder [Recovering/Resolving]
  - Red blood cell sedimentation rate increased [Unknown]
  - Generalised oedema [Recovered/Resolved]
